FAERS Safety Report 8225557-4 (Version None)
Quarter: 2012Q1

REPORT INFORMATION
  Report Type: 
  Country: None (occurrence: None)
  Receive Date: 20120321
  Receipt Date: 20120313
  Transmission Date: 20120608
  Serious: Yes (Other)
  Sender: FDA-Public Use
  Company Number: PHHY2012ES021846

PATIENT
  Age: 35 Year
  Sex: Female

DRUGS (6)
  1. AMOXICILLIN AND CLAVULANATE POTASSIUM [Concomitant]
     Indication: INFLUENZA
  2. TAMIFLU [Interacting]
     Indication: INFLUENZA
     Dosage: 75 MG, BID
  3. PEGINTERFERON ALFA-2A [Concomitant]
     Dosage: UNK
     Dates: start: 20091101
  4. RIBAVIRIN [Suspect]
     Indication: HEPATITIS C
     Dosage: 800 MG, DAILY
     Dates: start: 20081001
  5. RIBAVIRIN [Interacting]
     Dosage: UNK
     Dates: start: 20091101
  6. PEGINTERFERON ALFA-2A [Concomitant]
     Dosage: 1.5 UG/KG/WEEK
     Dates: start: 20081001

REACTIONS (5)
  - ANAEMIA [None]
  - DRUG INTERACTION [None]
  - FATIGUE [None]
  - ASTHENIA [None]
  - HEPATITIS C [None]
